FAERS Safety Report 4269768-1 (Version None)
Quarter: 2004Q1

REPORT INFORMATION
  Report Type: 
  Country: None (occurrence: None)
  Receive Date: 20040113
  Receipt Date: 20040105
  Transmission Date: 20041129
  Serious: Yes (Disabling)
  Sender: FDA-Public Use
  Company Number: WAES 0401USA00131

PATIENT
  Age: 58 Year
  Sex: Male

DRUGS (3)
  1. AVAPRO [Concomitant]
  2. NIASPAN [Concomitant]
  3. ZOCOR [Suspect]
     Route: 048
     Dates: start: 20030101

REACTIONS (5)
  - BACK PAIN [None]
  - BLOOD CREATINE PHOSPHOKINASE INCREASED [None]
  - FATIGUE [None]
  - MYALGIA [None]
  - WEIGHT INCREASED [None]
